FAERS Safety Report 6146705-6 (Version None)
Quarter: 2009Q2

REPORT INFORMATION
  Report Type: 
  Country: None (occurrence: None)
  Receive Date: 20090407
  Receipt Date: 20090327
  Transmission Date: 20091009
  Serious: Yes (Hospitalization, Other)
  Sender: FDA-Public Use
  Company Number: PHHY2009JP09939

PATIENT
  Age: 53 Year
  Sex: Male

DRUGS (1)
  1. TEGRETOL [Suspect]
     Indication: FACIAL PAIN
     Dosage: UNK

REACTIONS (8)
  - ALLODYNIA [None]
  - DRUG INEFFECTIVE [None]
  - FACIAL PAIN [None]
  - HYPOAESTHESIA FACIAL [None]
  - NEURALGIA [None]
  - PARAESTHESIA [None]
  - PERIPHERAL NERVE DECOMPRESSION [None]
  - PRURITUS [None]
